FAERS Safety Report 7486149-8 (Version None)
Quarter: 2011Q2

REPORT INFORMATION
  Report Type: 
  Country: None (occurrence: None)
  Receive Date: 20110517
  Receipt Date: 20110504
  Transmission Date: 20111010
  Serious: Yes (Hospitalization, Other)
  Sender: FDA-Public Use
  Company Number: US-ACTELION-A-US2011-48407

PATIENT

DRUGS (6)
  1. FOLIC ACID [Concomitant]
  2. PRAVASTATIN [Concomitant]
  3. METHOTREXATE [Concomitant]
  4. PREDNISONE TAB [Concomitant]
  5. TRAMADOL HCL [Concomitant]
  6. TRACLEER [Suspect]
     Indication: PULMONARY ARTERIAL HYPERTENSION
     Dosage: 62.5 MG, BID
     Route: 048
     Dates: start: 20110411, end: 20110415

REACTIONS (14)
  - NAUSEA [None]
  - SMALL INTESTINAL OBSTRUCTION [None]
  - ABDOMINAL HERNIA [None]
  - VOMITING [None]
  - ABDOMINAL PAIN [None]
  - TRANSFUSION [None]
  - HYPOKALAEMIA [None]
  - DEHYDRATION [None]
  - RENAL FAILURE ACUTE [None]
  - SINUS TACHYCARDIA [None]
  - EXPLORATIVE LAPAROTOMY [None]
  - POSTOPERATIVE ADHESION [None]
  - ABDOMINAL DISTENSION [None]
  - ANAEMIA [None]
